FAERS Safety Report 18645402 (Version 1)
Quarter: 2020Q4

REPORT INFORMATION
  Report Type: Spontaneous
  Country: US (occurrence: US)
  Receive Date: 20201221
  Receipt Date: 20201221
  Transmission Date: 20210114
  Serious: Yes (Hospitalization)
  Sender: FDA-Public Use
  Company Number: US-FRESENIUS MEDICAL CARE RENAL THERAPIES GROUP-FMC-2012-001527

PATIENT
  Age: 73 Year
  Sex: Male

DRUGS (5)
  1. DELFLEX WITH DEXTROSE 1.5% LOW MAGNESIUM LOW CALCIUM [Suspect]
     Active Substance: CALCIUM CHLORIDE\DEXTROSE\MAGNESIUM CHLORIDE\SODIUM CHLORIDE\SODIUM LACTATE
     Indication: END STAGE RENAL DISEASE
     Dosage: FILL VOLUME 2700 ML, 4 EXCHANGES, NO LAST FILL, NO DAYTIME EXCHANGE, SINCE APPROXIMATELY 01JAN2019.
     Route: 033
  2. MIRCERA [Concomitant]
     Active Substance: METHOXY POLYETHYLENE GLYCOL-EPOETIN BETA
  3. VENOFER [Concomitant]
     Active Substance: IRON SUCROSE
  4. DELFLEX WITH DEXTROSE 2.5% LOW MAGNESIUM LOW CALCIUM [Suspect]
     Active Substance: CALCIUM CHLORIDE\DEXTROSE\MAGNESIUM CHLORIDE\SODIUM CHLORIDE\SODIUM LACTATE
     Indication: END STAGE RENAL DISEASE
     Dosage: FILL VOLUME 2700 ML, 4 EXCHANGES, NO LAST FILL, NO DAYTIME EXCHANGE, SINCE APPROXIMATELY 01JAN2019
     Route: 033
  5. DELFLEX WITH DEXTROSE 4.25% LOW MAGNESIUM LOW CALCIUM [Suspect]
     Active Substance: CALCIUM CHLORIDE\DEXTROSE\MAGNESIUM CHLORIDE\SODIUM CHLORIDE\SODIUM LACTATE
     Indication: END STAGE RENAL DISEASE
     Dosage: FILL VOLUME 2700 ML, 4 EXCHANGES, NO LAST FILL, NO DAYTIME EXCHANGE, SINCE APPROXIMATELY 01JAN2019
     Route: 033

REACTIONS (2)
  - Vomiting [Recovering/Resolving]
  - Ultrafiltration failure [Recovering/Resolving]
